FAERS Safety Report 17084066 (Version 1)
Quarter: 2019Q4

REPORT INFORMATION
  Report Type: Spontaneous
  Country: DE (occurrence: DE)
  Receive Date: 20191127
  Receipt Date: 20191127
  Transmission Date: 20200122
  Serious: Yes (Hospitalization)
  Sender: FDA-Public Use
  Company Number: DE-MYLANLABS-2019M1115664

PATIENT
  Age: 61 Year
  Sex: Female

DRUGS (10)
  1. METOPROLOL MYLAN [Suspect]
     Active Substance: METOPROLOL
     Indication: PRODUCT USED FOR UNKNOWN INDICATION
     Dosage: 47.5 MILLIGRAM, BID (1-0-1-0)
  2. TORASEMID [Concomitant]
     Active Substance: TORSEMIDE
     Dosage: 50 MILLIGRAM, QD (1-0-0-0)
  3. DREISAVIT                          /00844801/ [Concomitant]
     Dosage: NK MG, 0-1-0-0
  4. BICANORM [Concomitant]
     Active Substance: SODIUM BICARBONATE
     Dosage: NK MG, 0-1-0-0
  5. PANTOPRAZOL                        /01263201/ [Concomitant]
     Active Substance: PANTOPRAZOLE
     Dosage: 40 MILLIGRAM, QD (0-0-1-0)
  6. ASPIRIN. [Concomitant]
     Active Substance: ASPIRIN
     Dosage: 100 MILLIGRAM, QD (0-1-0-0)
  7. ALFACALCIDOL [Concomitant]
     Active Substance: ALFACALCIDOL
     Dosage: 0.25 MICROGRAM, QD (1-0-0-0)
  8. CALCIUM [Concomitant]
     Active Substance: CALCIUM
     Dosage: 500 MILLIGRAM, TID
  9. LEVOTHYROXIN [Concomitant]
     Active Substance: LEVOTHYROXINE
     Dosage: 100 MICROGRAM, QD
  10. AMLODIPIN                          /00972401/ [Concomitant]
     Active Substance: AMLODIPINE BESYLATE
     Dosage: 5 MILLIGRAM, QD (1-0-0-0)

REACTIONS (4)
  - Product prescribing error [Unknown]
  - Erythema [Unknown]
  - Peripheral arterial occlusive disease [Unknown]
  - Pain [Unknown]
